FAERS Safety Report 9452357 (Version 2)
Quarter: 2013Q4

REPORT INFORMATION
  Report Type: Spontaneous
  Country: CA (occurrence: CA)
  Receive Date: 20130812
  Receipt Date: 20131204
  Transmission Date: 20140711
  Serious: Yes (Other)
  Sender: FDA-Public Use
  Company Number: CA-ELI_LILLY_AND_COMPANY-CA201308000147

PATIENT
  Age: 42 Year
  Sex: Female

DRUGS (3)
  1. CYMBALTA [Suspect]
     Indication: NEURALGIA
     Dosage: 30 MG, QD
     Route: 048
  2. CYMBALTA [Suspect]
     Indication: MOOD ALTERED
     Dosage: 60 MG, QD
     Route: 048
     Dates: start: 201301
  3. CONCERTA [Concomitant]
     Indication: PRODUCT USED FOR UNKNOWN INDICATION
     Dosage: UNK, UNKNOWN
     Route: 065

REACTIONS (5)
  - Hepatomegaly [Unknown]
  - Off label use [Unknown]
  - Lower urinary tract symptoms [Unknown]
  - Nausea [Unknown]
  - Palpitations [Unknown]
